FAERS Safety Report 22119547 (Version 4)
Quarter: 2023Q4

REPORT INFORMATION
  Report Type: Spontaneous
  Country: BR (occurrence: None)
  Receive Date: 20230321
  Receipt Date: 20231003
  Transmission Date: 20240110
  Serious: Yes (Other)
  Sender: FDA-Public Use
  Company Number: 2023A062849

PATIENT
  Age: 59 Year
  Sex: Female

DRUGS (8)
  1. LYNPARZA [Suspect]
     Active Substance: OLAPARIB
     Indication: Ovarian cancer
     Dosage: 2 TABLETS IN THE MORNING AND 2 TABLETS AT NIGHT
     Route: 048
     Dates: start: 20180501, end: 202301
  2. LYNPARZA [Suspect]
     Active Substance: OLAPARIB
     Indication: Hepatic cancer
     Dosage: 2 TABLETS IN THE MORNING AND 2 TABLETS AT NIGHT
     Route: 048
     Dates: start: 20180501, end: 202301
  3. LYNPARZA [Suspect]
     Active Substance: OLAPARIB
     Indication: Ovarian cancer
     Dosage: 1 TABLET IN THE MORNING AND 2 TABLETS AT NIGHT
     Route: 048
     Dates: start: 202301
  4. LYNPARZA [Suspect]
     Active Substance: OLAPARIB
     Indication: Hepatic cancer
     Dosage: 1 TABLET IN THE MORNING AND 2 TABLETS AT NIGHT
     Route: 048
     Dates: start: 202301
  5. LYNPARZA [Suspect]
     Active Substance: OLAPARIB
     Indication: Ovarian cancer
     Dosage: 2 TABLETS IN THE MORNING AND 2 TABLETS AT NIGHT
     Route: 048
     Dates: start: 2023
  6. LYNPARZA [Suspect]
     Active Substance: OLAPARIB
     Indication: Hepatic cancer
     Dosage: 2 TABLETS IN THE MORNING AND 2 TABLETS AT NIGHT
     Route: 048
     Dates: start: 2023
  7. LYNPARZA [Suspect]
     Active Substance: OLAPARIB
     Indication: Ovarian cancer
     Dosage: A TABLET OF 150MG PLUS 50MG IN THE MORNING AND A TABLET OF 150MG PLUS 50MG AT NIGHT
     Route: 048
     Dates: start: 20230523
  8. LYNPARZA [Suspect]
     Active Substance: OLAPARIB
     Indication: Hepatic cancer
     Dosage: A TABLET OF 150MG PLUS 50MG IN THE MORNING AND A TABLET OF 150MG PLUS 50MG AT NIGHT
     Route: 048
     Dates: start: 20230523

REACTIONS (8)
  - Malignant neoplasm progression [Not Recovered/Not Resolved]
  - Memory impairment [Not Recovered/Not Resolved]
  - Depressed mood [Not Recovered/Not Resolved]
  - Feeding disorder [Recovering/Resolving]
  - Weight decreased [Recovering/Resolving]
  - Illness [Recovered/Resolved]
  - Nausea [Recovered/Resolved]
  - Vomiting [Recovered/Resolved]

NARRATIVE: CASE EVENT DATE: 20190101
